FAERS Safety Report 17905554 (Version 1)
Quarter: 2020Q2

REPORT INFORMATION
  Report Type: Spontaneous
  Country: US (occurrence: US)
  Receive Date: 20200616
  Receipt Date: 20200616
  Transmission Date: 20200714
  Serious: Yes (Other)
  Sender: FDA-Public Use
  Company Number: None

PATIENT
  Age: 65 Year
  Sex: Male
  Weight: 85.1 kg

DRUGS (9)
  1. ASCORBIC ACID 500MG PO BID [Concomitant]
     Dates: start: 20200612
  2. TOCILIZUMAB 800MG IV ONCE [Concomitant]
     Dates: start: 20200614, end: 20200614
  3. FAMOTIDINE 20MG PO BID [Concomitant]
     Dates: start: 20200614, end: 20200616
  4. PROPOFOL DRIP [Concomitant]
     Active Substance: PROPOFOL
     Dates: start: 20200614
  5. REMDESIVIR. [Suspect]
     Active Substance: REMDESIVIR
     Indication: COVID-19
     Route: 041
     Dates: start: 20200612, end: 20200616
  6. ASPIRIN 81MG PO DAILY [Concomitant]
     Active Substance: ASPIRIN
     Dates: start: 20200614
  7. ENOXAPARIN 40MG SUBCUT Q24H [Concomitant]
     Dates: start: 20200614, end: 20200615
  8. FENTANYL DRIP [Concomitant]
     Dates: start: 20200614
  9. NOREPINEPHRINE DRIP [Concomitant]
     Dates: start: 20200614

REACTIONS (1)
  - Glomerular filtration rate decreased [None]

NARRATIVE: CASE EVENT DATE: 20200616
